FAERS Safety Report 4331087-2 (Version None)
Quarter: 2004Q2

REPORT INFORMATION
  Report Type: 
  Country: None (occurrence: None)
  Receive Date: 20040405
  Receipt Date: 20040324
  Transmission Date: 20050107
  Serious: Yes (Death, Other)
  Sender: FDA-Public Use
  Company Number: JP-BRISTOL-MYERS SQUIBB COMPANY-12541413

PATIENT
  Age: 42 Year
  Sex: Female

DRUGS (5)
  1. MITOMYCIN-C BULK POWDER [Suspect]
     Indication: ADENOSQUAMOUS CARCINOMA OF THE CERVIX
     Dosage: 10 MG, 8 MG
     Route: 042
     Dates: start: 20030814, end: 20031023
  2. CAMPTO [Suspect]
     Indication: ADENOSQUAMOUS CARCINOMA OF THE CERVIX
     Route: 042
     Dates: start: 20030814, end: 20031023
  3. SOL MELCORT [Concomitant]
     Route: 042
     Dates: start: 20030814, end: 20031023
  4. SEROTONE [Concomitant]
     Route: 042
     Dates: start: 20030814, end: 20031023
  5. PRIMPERAN INJ [Concomitant]
     Route: 042
     Dates: start: 20030814, end: 20031023

REACTIONS (15)
  - ALANINE AMINOTRANSFERASE INCREASED [None]
  - ANXIETY [None]
  - ASPARTATE AMINOTRANSFERASE INCREASED [None]
  - CEREBRAL HAEMORRHAGE [None]
  - EYELID OEDEMA [None]
  - HAEMOGLOBIN DECREASED [None]
  - HAEMOLYTIC URAEMIC SYNDROME [None]
  - HYPERTENSION [None]
  - MALAISE [None]
  - OEDEMA PERIPHERAL [None]
  - RENAL FAILURE [None]
  - STAPHYLOCOCCAL INFECTION [None]
  - THROMBOCYTOPENIA [None]
  - THROMBOTIC THROMBOCYTOPENIC PURPURA [None]
  - URINARY TRACT OBSTRUCTION [None]
